FAERS Safety Report 18409796 (Version 1)
Quarter: 2020Q4

REPORT INFORMATION
  Report Type: Other
  Country: HU (occurrence: HU)
  Receive Date: 20201021
  Receipt Date: 20201021
  Transmission Date: 20210114
  Serious: Yes (Disabling)
  Sender: FDA-Public Use
  Company Number: HU-MACLEODS PHARMACEUTICALS US LTD-MAC2020028627

PATIENT

DRUGS (25)
  1. ALGOPYRIN [METAMIZOLE SODIUM] [Suspect]
     Active Substance: METAMIZOLE SODIUM
     Indication: PRODUCT USED FOR UNKNOWN INDICATION
     Dosage: 2 GRAM, SINGLE, 1 TOTAL
     Route: 065
     Dates: start: 20200117, end: 20200117
  2. FENTANYL. [Suspect]
     Active Substance: FENTANYL
     Dosage: 2 MILLILITER
     Route: 065
     Dates: start: 20200117, end: 20200117
  3. KLION [METRONIDAZOLE] [Suspect]
     Active Substance: METRONIDAZOLE
     Dosage: UNK
     Route: 065
     Dates: start: 20200117, end: 20200127
  4. ALGOPYRIN [METAMIZOLE SODIUM] [Suspect]
     Active Substance: METAMIZOLE SODIUM
     Dosage: UNK
     Route: 065
     Dates: start: 20200120, end: 20200120
  5. BRIDION [Suspect]
     Active Substance: SUGAMMADEX
     Indication: PRODUCT USED FOR UNKNOWN INDICATION
     Dosage: 50 MILLIGRAM, SINGLE, 1 TOTAL
     Route: 065
     Dates: start: 20200117, end: 20200117
  6. CONTROLOC [Suspect]
     Active Substance: PANTOPRAZOLE SODIUM
     Dosage: 1 DOSAGE FORM, BID (12HOUR)
     Route: 065
     Dates: start: 20200128, end: 20200129
  7. XANAX [Suspect]
     Active Substance: ALPRAZOLAM
     Indication: PREMEDICATION
     Dosage: 0.25 MILLIGRAM, SINGLE, 1 TOTAL
     Route: 065
     Dates: start: 20200117, end: 20200117
  8. KLION [METRONIDAZOLE] [Suspect]
     Active Substance: METRONIDAZOLE
     Indication: PRODUCT USED FOR UNKNOWN INDICATION
     Dosage: 500 MILLIGRAM, SINGLE, 1 TOTAL
     Route: 065
     Dates: start: 20200117, end: 20200117
  9. ESMERON [Suspect]
     Active Substance: ROCURONIUM BROMIDE
     Indication: PRODUCT USED FOR UNKNOWN INDICATION
     Dosage: UNK
     Route: 065
     Dates: start: 20200117, end: 20200117
  10. BUPIVACAINE. [Suspect]
     Active Substance: BUPIVACAINE
     Indication: EPIDURAL ANAESTHESIA
     Dosage: UNK
     Route: 065
     Dates: start: 20200117, end: 20200117
  11. CLAFORAN [Suspect]
     Active Substance: CEFOTAXIME SODIUM
     Indication: PRODUCT USED FOR UNKNOWN INDICATION
     Dosage: 1 GRAM, SINGLE, 1 TOTAL
     Route: 065
     Dates: start: 20200117, end: 20200117
  12. CLAFORAN [Suspect]
     Active Substance: CEFOTAXIME SODIUM
     Dosage: 1 GRAM, BID (12 HOUR)
     Route: 065
     Dates: start: 20200117, end: 20200121
  13. FENTANYL. [Suspect]
     Active Substance: FENTANYL
     Dosage: 2 MILLILITER
     Route: 065
     Dates: start: 20200119, end: 20200119
  14. SUPRAX [Suspect]
     Active Substance: CEFIXIME
     Indication: PRODUCT USED FOR UNKNOWN INDICATION
     Dosage: UNK
     Route: 065
     Dates: start: 20200122, end: 20200127
  15. ADRENALINE [Suspect]
     Active Substance: EPINEPHRINE
     Indication: EPIDURAL ANAESTHESIA
     Dosage: UNK
     Route: 065
     Dates: start: 20200117, end: 20200117
  16. PARACETAMOL [Suspect]
     Active Substance: ACETAMINOPHEN
     Indication: PREMEDICATION
     Dosage: 1 GRAM, SINGLE, TOTAL
     Route: 065
     Dates: start: 20200117, end: 20200117
  17. CONTROLOC [Suspect]
     Active Substance: PANTOPRAZOLE SODIUM
     Indication: PRODUCT USED FOR UNKNOWN INDICATION
     Dosage: 1 DOSAGE FORM, BID (12HOUR)
     Route: 065
     Dates: start: 20200117, end: 20200129
  18. CLEXANE [Suspect]
     Active Substance: ENOXAPARIN SODIUM
     Indication: PRODUCT USED FOR UNKNOWN INDICATION
     Dosage: 0.4 MILLILITER
     Route: 065
     Dates: start: 202001, end: 20200129
  19. FENTANYL. [Suspect]
     Active Substance: FENTANYL
     Indication: EPIDURAL ANAESTHESIA
     Dosage: UNK
     Route: 065
     Dates: start: 20200117, end: 20200117
  20. PROPOFOL. [Suspect]
     Active Substance: PROPOFOL
     Indication: PRODUCT USED FOR UNKNOWN INDICATION
     Dosage: 250 MILLIGRAM, SINGLE, 1 TOTAL
     Route: 065
     Dates: start: 20200117, end: 20200117
  21. LIDOCAINE. [Suspect]
     Active Substance: LIDOCAINE
     Indication: EPIDURAL ANAESTHESIA
     Dosage: UNK
     Route: 065
     Dates: start: 20200117, end: 20200117
  22. TRAMADOL. [Suspect]
     Active Substance: TRAMADOL
     Indication: PRODUCT USED FOR UNKNOWN INDICATION
     Dosage: UNK
     Route: 065
     Dates: start: 20200120, end: 20200120
  23. ONDANSETRON 4 MG [Suspect]
     Active Substance: ONDANSETRON
     Indication: PRODUCT USED FOR UNKNOWN INDICATION
     Dosage: 4 MILLIGRAM, SINGLE, TOTAL
     Route: 065
     Dates: start: 20200117, end: 20200117
  24. SUFENTANIL [Suspect]
     Active Substance: SUFENTANIL
     Indication: PRODUCT USED FOR UNKNOWN INDICATION
     Dosage: 40 MICROGRAM, SINGLE, 1 TOTAL
     Route: 065
     Dates: start: 20200117, end: 20200117
  25. NO-SPA [Suspect]
     Active Substance: DROTAVERINE HYDROCHLORIDE
     Indication: PRODUCT USED FOR UNKNOWN INDICATION
     Dosage: UNK
     Route: 065
     Dates: start: 20200120, end: 20200120

REACTIONS (1)
  - Deafness neurosensory [Not Recovered/Not Resolved]

NARRATIVE: CASE EVENT DATE: 20200124
